FAERS Safety Report 19568763 (Version 4)
Quarter: 2021Q3

REPORT INFORMATION
  Report Type: Spontaneous
  Country: US (occurrence: US)
  Receive Date: 20210716
  Receipt Date: 20210809
  Transmission Date: 20211014
  Serious: Yes (Hospitalization)
  Sender: FDA-Public Use
  Company Number: US-ACORDA-ACO_169659_2021

PATIENT
  Age: 71 Year
  Sex: Female
  Weight: 51.71 kg

DRUGS (10)
  1. TYSABRI [Suspect]
     Active Substance: NATALIZUMAB
     Dosage: 300 MILLIGRAM; 1 EVERY 4 WEEK
     Dates: start: 20130716, end: 20140401
  2. TYSABRI [Suspect]
     Active Substance: NATALIZUMAB
     Dosage: UNK
     Route: 042
     Dates: start: 202003
  3. TYSABRI [Suspect]
     Active Substance: NATALIZUMAB
     Dosage: 300 MILLIGRAM; 1 EVERY 4 WEEK
     Dates: start: 20160223, end: 20200721
  4. TYSABRI [Suspect]
     Active Substance: NATALIZUMAB
     Dosage: 300 MILLIGRAM
     Route: 042
     Dates: start: 20160223, end: 20200721
  5. TYSABRI [Suspect]
     Active Substance: NATALIZUMAB
     Dosage: UNK
     Route: 042
     Dates: start: 202007
  6. AMPYRA [Suspect]
     Active Substance: DALFAMPRIDINE
     Indication: GAIT DISTURBANCE
     Dosage: 10 MILLIGRAM, BID
     Route: 048
  7. TYSABRI [Suspect]
     Active Substance: NATALIZUMAB
     Dosage: UNK
     Route: 042
     Dates: start: 20210716
  8. TYSABRI [Suspect]
     Active Substance: NATALIZUMAB
     Indication: MULTIPLE SCLEROSIS
     Dosage: 300 MILLIGRAM EVERY 4 WEEKS; INFUSED OVER 1 HOUR
     Route: 042
     Dates: start: 20130716, end: 20140603
  9. TYSABRI [Suspect]
     Active Substance: NATALIZUMAB
     Dosage: UNK
     Route: 042
     Dates: start: 20130716, end: 20140603
  10. TYSABRI [Suspect]
     Active Substance: NATALIZUMAB
     Dosage: UNK
     Route: 042
     Dates: start: 202007

REACTIONS (7)
  - Multiple sclerosis [Not Recovered/Not Resolved]
  - Multiple sclerosis relapse [Not Recovered/Not Resolved]
  - Post procedural complication [Unknown]
  - Back injury [Recovered/Resolved]
  - Decubitus ulcer [Not Recovered/Not Resolved]
  - Fall [Recovered/Resolved]
  - Scoliosis [Recovered/Resolved]

NARRATIVE: CASE EVENT DATE: 202003
